FAERS Safety Report 20077740 (Version 1)
Quarter: 2021Q4

REPORT INFORMATION
  Report Type: Spontaneous
  Country: FR (occurrence: FR)
  Receive Date: 20211116
  Receipt Date: 20211116
  Transmission Date: 20220303
  Serious: Yes (Hospitalization)
  Sender: FDA-Public Use
  Company Number: None

PATIENT
  Age: 64 Year
  Sex: Male
  Weight: 63 kg

DRUGS (7)
  1. CARBOPLATIN [Suspect]
     Active Substance: CARBOPLATIN
     Indication: Laryngeal cancer
     Dosage: 485 MILLIGRAM, CYCLE
     Route: 042
     Dates: start: 20210716
  2. FLUOROURACIL [Suspect]
     Active Substance: FLUOROURACIL
     Indication: Laryngeal cancer
     Dosage: 6800 MILLIGRAM
     Route: 042
     Dates: start: 20210716, end: 20210719
  3. KEYTRUDA [Suspect]
     Active Substance: PEMBROLIZUMAB
     Indication: Laryngeal cancer
     Dosage: 200 MILLIGRAM, CYCLE
     Route: 042
     Dates: start: 20210716
  4. AMIODARONE [Concomitant]
     Active Substance: AMIODARONE
     Dosage: UNK
  5. ROSUVASTATINE                      /01588601/ [Concomitant]
     Dosage: UNK
  6. BISOPROLOL                         /00802602/ [Concomitant]
     Dosage: UNK
  7. PREVISCAN                          /00789001/ [Concomitant]
     Dosage: UNK

REACTIONS (1)
  - Acute coronary syndrome [Recovering/Resolving]

NARRATIVE: CASE EVENT DATE: 20210719
